FAERS Safety Report 24070995 (Version 1)
Quarter: 2024Q3

REPORT INFORMATION
  Report Type: Report from Study
  Country: CA (occurrence: CA)
  Receive Date: 20240710
  Receipt Date: 20240710
  Transmission Date: 20241016
  Serious: No
  Sender: ROCHE
  Company Number: CA-ROCHE-3402223

PATIENT
  Sex: Male

DRUGS (2)
  1. ALECTINIB [Suspect]
     Active Substance: ALECTINIB
     Indication: Non-small cell lung cancer stage IV
     Dosage: DRUG DOSE FIRST ADMINISTERED IS 600 MG MILLIGRAM(S)
     Route: 048
     Dates: start: 20201009
  2. WELLBUTRIN XL [Concomitant]
     Active Substance: BUPROPION HYDROCHLORIDE
     Indication: Fatigue

REACTIONS (2)
  - Drug ineffective [Unknown]
  - No adverse event [Unknown]
